FAERS Safety Report 18886415 (Version 1)
Quarter: 2021Q1

REPORT INFORMATION
  Report Type: Report from Study
  Country: None (occurrence: US)
  Receive Date: 20210212
  Receipt Date: 20210212
  Transmission Date: 20210420
  Serious: Yes (Other)
  Sender: FDA-Public Use
  Company Number: US-BIOVITRUM-2021US1471

PATIENT
  Age: 40 Year
  Sex: Female

DRUGS (3)
  1. KINERET [Suspect]
     Active Substance: ANAKINRA
     Indication: POLYCHONDRITIS
  2. KINERET [Suspect]
     Active Substance: ANAKINRA
     Indication: PROTEINURIA
     Route: 058
     Dates: start: 20190405
  3. KINERET [Suspect]
     Active Substance: ANAKINRA
     Indication: BEHCET^S SYNDROME

REACTIONS (3)
  - COVID-19 [Unknown]
  - Mouth ulceration [Unknown]
  - Off label use [Not Recovered/Not Resolved]

NARRATIVE: CASE EVENT DATE: 20190405
